FAERS Safety Report 5818013-1 (Version None)
Quarter: 2008Q3

REPORT INFORMATION
  Report Type: 
  Country: None (occurrence: None)
  Receive Date: 20080722
  Receipt Date: 20080630
  Transmission Date: 20090109
  Serious: No
  Sender: FDA-Public Use
  Company Number: US-BOEHRINGER INGELHEIM GMBH, GERMANY-2008-BP-10199BP

PATIENT
  Age: 64 Year
  Sex: Male

DRUGS (12)
  1. CATAPRES-TTS-1 [Suspect]
     Indication: BLOOD PRESSURE MANAGEMENT
     Route: 062
     Dates: start: 20080501
  2. INSULIN [Concomitant]
     Indication: DIABETES MELLITUS
  3. ASPIRIN [Concomitant]
  4. BUPROPION HCL [Concomitant]
     Indication: DEPRESSION
  5. GLYBURIDE [Concomitant]
     Indication: DIABETES MELLITUS
  6. GEMFIBROZIL [Concomitant]
     Indication: HYPERCHOLESTEROLAEMIA
  7. DOXAZOSIN MESYLATE [Concomitant]
     Indication: HYPERTENSION
  8. QUINALAPRIL [Concomitant]
     Indication: HYPERTENSION
  9. ALLOPURINOL [Concomitant]
     Indication: GOUT
  10. FLUOXETINE [Concomitant]
     Indication: DEPRESSION
  11. TRAMADOL HCL [Concomitant]
     Indication: BACK PAIN
  12. CYCLOBENZAPRINE HCL [Concomitant]
     Indication: BACK PAIN

REACTIONS (2)
  - APPLICATION SITE ERYTHEMA [None]
  - APPLICATION SITE IRRITATION [None]
